FAERS Safety Report 7345016-0 (Version None)
Quarter: 2011Q1

REPORT INFORMATION
  Report Type: 
  Country: None (occurrence: None)
  Receive Date: 20110302
  Receipt Date: 20110215
  Transmission Date: 20110831
  Serious: Yes (Other)
  Sender: FDA-Public Use
  Company Number: AUR-APL-2011-00588

PATIENT
  Age: 20 Year
  Sex: Female

DRUGS (4)
  1. TRIHEXPHENIDYL [Concomitant]
  2. METFORMIN [Suspect]
     Dosage: 200-500MG-DAILY
     Dates: start: 20080101, end: 20080101
  3. METFORMIN [Suspect]
     Dosage: 250MG-DAILY
     Dates: start: 20080501, end: 20080501
  4. RISPERIDONE [Concomitant]

REACTIONS (7)
  - MENSTRUAL DISORDER [None]
  - WEIGHT INCREASED [None]
  - BLOOD PROLACTIN INCREASED [None]
  - PSYCHOTIC DISORDER [None]
  - CONDITION AGGRAVATED [None]
  - ACNE [None]
  - HIRSUTISM [None]
